FAERS Safety Report 13850531 (Version 2)
Quarter: 2017Q3

REPORT INFORMATION
  Report Type: Spontaneous
  Country: MA (occurrence: MA)
  Receive Date: 20170809
  Receipt Date: 20170907
  Transmission Date: 20171127
  Serious: Yes (Other)
  Sender: FDA-Public Use
  Company Number: MA-PFIZER INC-2017339695

PATIENT
  Age: 22 Year
  Sex: Female

DRUGS (1)
  1. DOSTINEX [Suspect]
     Active Substance: CABERGOLINE
     Indication: ADENOMA BENIGN
     Dosage: 1 TABLET, WEEKLY

REACTIONS (5)
  - Chest pain [Unknown]
  - Palpitations [Unknown]
  - Mitral valve incompetence [Unknown]
  - Drug ineffective [Unknown]
  - Fibrosis [Unknown]
